FAERS Safety Report 9832594 (Version 1)
Quarter: 2014Q1

REPORT INFORMATION
  Report Type: Spontaneous
  Country: US (occurrence: US)
  Receive Date: 20140121
  Receipt Date: 20140121
  Transmission Date: 20141002
  Serious: No
  Sender: FDA-Public Use
  Company Number: US-BAYER-2014-005358

PATIENT
  Age: 52 Year
  Sex: Male
  Weight: 90.7 kg

DRUGS (3)
  1. ALEVE TABLET [Suspect]
     Indication: BACK PAIN
     Route: 048
  2. ALEVE TABLET [Suspect]
     Indication: BACK PAIN
     Dosage: 7-8 DF
     Route: 048
     Dates: start: 20140108, end: 20140108
  3. CENTRUM [Concomitant]

REACTIONS (9)
  - Extra dose administered [None]
  - Erythema [Not Recovered/Not Resolved]
  - Skin warm [Not Recovered/Not Resolved]
  - Night sweats [Not Recovered/Not Resolved]
  - Chest discomfort [Not Recovered/Not Resolved]
  - Rash [Not Recovered/Not Resolved]
  - Hypertension [None]
  - Dyspnoea [Not Recovered/Not Resolved]
  - Headache [Not Recovered/Not Resolved]
